FAERS Safety Report 8773574 (Version 1)
Quarter: 2012Q4

REPORT INFORMATION
  Report Type: 
  Country: US (occurrence: US)
  Receive Date: 20120907
  Receipt Date: 20120907
  Transmission Date: 20130627
  Serious: Yes (Hospitalization, Other)
  Sender: FDA-Public Use
  Company Number: US-JNJFOC-20120900474

PATIENT
  Sex: Female
  Weight: 63.96 kg

DRUGS (2)
  1. PARAFON FORTE [Suspect]
     Indication: MUSCLE RELAXANT THERAPY
     Route: 048
     Dates: start: 198805, end: 198805
  2. RONDEC TR [Concomitant]
     Indication: ANTIALLERGIC THERAPY
     Route: 048
     Dates: start: 1988, end: 1988

REACTIONS (6)
  - Anaphylactic reaction [Recovered/Resolved]
  - Loss of consciousness [Recovered/Resolved]
  - Renal impairment [Unknown]
  - Systemic lupus erythematosus [Unknown]
  - Arthritis [Unknown]
  - Feeling abnormal [Unknown]
